FAERS Safety Report 6177876-3 (Version None)
Quarter: 2009Q2

REPORT INFORMATION
  Report Type: 
  Country: None (occurrence: None)
  Receive Date: 20090504
  Receipt Date: 20090115
  Transmission Date: 20091009
  Serious: No
  Sender: FDA-Public Use
  Company Number: US-ALEXION-A200900035

PATIENT
  Sex: Female
  Weight: 56.689 kg

DRUGS (8)
  1. SOLIRIS [Suspect]
     Indication: PAROXYSMAL NOCTURNAL HAEMOGLOBINURIA
     Dosage: 600 MG, QW
     Route: 042
     Dates: start: 20080506, end: 20080527
  2. SOLIRIS [Suspect]
     Dosage: 900 MG, Q2W
     Route: 042
     Dates: start: 20080603
  3. IRON [Concomitant]
     Dosage: UNK
     Route: 048
  4. FOLIC ACID [Concomitant]
     Dosage: UNK
     Route: 048
  5. ASPIRIN [Concomitant]
     Dosage: 81 MG, QD
     Route: 048
  6. B COMPLEX                          /00212701/ [Concomitant]
     Dosage: UNK
     Route: 048
  7. NASONEX [Concomitant]
     Dosage: UNK
     Route: 045
  8. MULTIVITAMIN                       /00831701/ [Concomitant]
     Dosage: UNK
     Route: 048

REACTIONS (2)
  - BLOOD URINE PRESENT [None]
  - GASTROINTESTINAL DISORDER [None]
